FAERS Safety Report 4828119-1 (Version None)
Quarter: 2005Q4

REPORT INFORMATION
  Report Type: 
  Country: None (occurrence: None)
  Receive Date: 20051110
  Receipt Date: 20051104
  Transmission Date: 20060501
  Serious: Yes (Life-Threatening, Hospitalization)
  Sender: FDA-Public Use
  Company Number: HQWYE438007NOV05

PATIENT
  Age: 88 Year
  Sex: Male

DRUGS (6)
  1. GEMCITABINE              CONTROL FOR TEMSIROLIMUS [Suspect]
     Indication: MANTLE CELL LYMPHOMA
     Dates: start: 20050621
  2. LASIX               (FUROMESMIDE) [Concomitant]
  3. PANTOPRAZOLE SODIUM [Concomitant]
  4. FABAHISTIN (MEBHYDROLIN) [Concomitant]
  5. BETAHISTINE            (BETAHISTINE) [Concomitant]
  6. ACETYLSALICYLIC ACID SRT [Concomitant]

REACTIONS (6)
  - ALANINE AMINOTRANSFERASE INCREASED [None]
  - ASPARTATE AMINOTRANSFERASE INCREASED [None]
  - C-REACTIVE PROTEIN INCREASED [None]
  - CARDIAC FAILURE [None]
  - HAEMATOCRIT DECREASED [None]
  - HAEMOGLOBIN DECREASED [None]
